FAERS Safety Report 4711090-0 (Version None)
Quarter: 2005Q3

REPORT INFORMATION
  Report Type: 
  Country: None (occurrence: None)
  Receive Date: 20050707
  Receipt Date: 20050629
  Transmission Date: 20060218
  Serious: Yes (Other)
  Sender: FDA-Public Use
  Company Number: HQWYE624901APR05

PATIENT
  Age: 10 Month

DRUGS (1)
  1. EFFEXOR XR [Suspect]
     Indication: DEPRESSION
     Dosage: 187.5 MG 1X PER 1 DAY TRANSPLACENTAL
     Route: 064
     Dates: start: 20020912

REACTIONS (2)
  - DRUG EXPOSURE DURING PREGNANCY [None]
  - LYMPHOCYTIC LEUKAEMIA [None]
